FAERS Safety Report 17750204 (Version 1)
Quarter: 2020Q2

REPORT INFORMATION
  Report Type: Spontaneous
  Country: US (occurrence: US)
  Receive Date: 20200506
  Receipt Date: 20200506
  Transmission Date: 20200714
  Serious: No
  Sender: FDA-Public Use
  Company Number: US-PFIZER INC-2020178825

PATIENT
  Age: 52 Year
  Sex: Female
  Weight: 83.91 kg

DRUGS (2)
  1. LETROZOLE. [Concomitant]
     Active Substance: LETROZOLE
  2. IBRANCE [Suspect]
     Active Substance: PALBOCICLIB
     Indication: BREAST CANCER METASTATIC
     Dosage: 125 MG, CYCLIC (FOR 21 DAYS ON)
     Dates: start: 201805

REACTIONS (7)
  - Peripheral swelling [Recovered/Resolved]
  - Vomiting [Unknown]
  - Stomatitis [Unknown]
  - Diarrhoea [Unknown]
  - Joint swelling [Recovered/Resolved]
  - Feeling of body temperature change [Unknown]
  - Tremor [Unknown]

NARRATIVE: CASE EVENT DATE: 201812
